FAERS Safety Report 4465503-2 (Version None)
Quarter: 2004Q4

REPORT INFORMATION
  Report Type: 
  Country: None (occurrence: None)
  Receive Date: 20041004
  Receipt Date: 19980904
  Transmission Date: 20050328
  Serious: No
  Sender: FDA-Public Use
  Company Number: US-GLAXOSMITHKLINE-A0070300A

PATIENT
  Age: 55 Year
  Sex: Female
  Weight: 62.6 kg

DRUGS (5)
  1. IMITREX [Suspect]
     Dosage: 1SPR AS REQUIRED
     Route: 045
     Dates: start: 19980301
  2. IMITREX [Suspect]
     Indication: MIGRAINE
     Dosage: 6MG AS REQUIRED
     Route: 058
  3. FIORICET [Concomitant]
     Indication: MIGRAINE
  4. ALLERGY MEDICATION [Concomitant]
  5. FUROSEMIDE [Concomitant]

REACTIONS (4)
  - BURNING SENSATION [None]
  - DRUG INEFFECTIVE [None]
  - NAUSEA [None]
  - VOMITING [None]
